FAERS Safety Report 6246690-2 (Version None)
Quarter: 2009Q2

REPORT INFORMATION
  Report Type: 
  Country: None (occurrence: None)
  Receive Date: 20090626
  Receipt Date: 20090624
  Transmission Date: 20091009
  Serious: No
  Sender: FDA-Public Use
  Company Number: US-B.I. PHARMACEUTICALS,INC./RIDGEFIELD-2009-BP-05315BP

PATIENT
  Age: 60 Year
  Sex: Male

DRUGS (6)
  1. CATAPRES-TTS-1 [Suspect]
     Indication: HYPERTENSION
     Dosage: 0.2 MG
     Route: 061
     Dates: start: 19970101
  2. COREG CR [Concomitant]
     Indication: HYPERTENSION
     Dosage: 40 MG
  3. HYDROCHLOROTHIAZIDE [Concomitant]
     Indication: HYPERTENSION
     Dosage: 25 MG
  4. EXFORGE [Concomitant]
     Indication: HYPERTENSION
  5. LAMICTAL [Concomitant]
     Indication: GRAND MAL CONVULSION
  6. BAYER ASA [Concomitant]
     Indication: PROPHYLAXIS
     Dosage: 81 MG

REACTIONS (4)
  - APPLICATION SITE PRURITUS [None]
  - BLISTER [None]
  - ERYTHEMA [None]
  - URTICARIA [None]
